FAERS Safety Report 12900050 (Version 1)
Quarter: 2016Q4

REPORT INFORMATION
  Report Type: Report from Study
  Country: UY (occurrence: UY)
  Receive Date: 20161101
  Receipt Date: 20161101
  Transmission Date: 20170207
  Serious: Yes (Other)
  Sender: FDA-Public Use
  Company Number: UY-BAYER-2016-055956

PATIENT
  Age: 57 Year
  Sex: Female

DRUGS (6)
  1. OMEPRAZOLE. [Concomitant]
     Active Substance: OMEPRAZOLE
     Dosage: 40 MG, BID
  2. STIVARGA [Suspect]
     Active Substance: REGORAFENIB
     Indication: COLORECTAL CANCER
     Dosage: UNK
     Route: 048
  3. GELALMIN [Concomitant]
     Dosage: 1 MG, UNK
  4. STIVARGA [Suspect]
     Active Substance: REGORAFENIB
     Indication: COLORECTAL CANCER
     Dosage: 40 MG, BID
     Route: 048
     Dates: start: 201512
  5. STIVARGA [Suspect]
     Active Substance: REGORAFENIB
     Indication: COLORECTAL CANCER
     Dosage: REST
     Dates: start: 20160912, end: 20160918
  6. STIVARGA [Suspect]
     Active Substance: REGORAFENIB
     Indication: COLORECTAL CANCER
     Dosage: 160 MG, QD
     Route: 048
     Dates: start: 20160924, end: 20161013

REACTIONS (23)
  - Palmar-plantar erythrodysaesthesia syndrome [Recovering/Resolving]
  - Diarrhoea [Not Recovered/Not Resolved]
  - Chills [Unknown]
  - Pain in extremity [Not Recovered/Not Resolved]
  - Skin lesion [Not Recovered/Not Resolved]
  - Chest pain [Recovering/Resolving]
  - Decreased appetite [Unknown]
  - Tendonitis [Not Recovered/Not Resolved]
  - Wound haemorrhage [Not Recovered/Not Resolved]
  - Gait disturbance [Recovering/Resolving]
  - Abdominal pain [Not Recovered/Not Resolved]
  - Influenza [Recovering/Resolving]
  - Hyperkeratosis [Recovering/Resolving]
  - Muscle contracture [Not Recovered/Not Resolved]
  - Unevaluable event [Recovering/Resolving]
  - Vision blurred [Not Recovered/Not Resolved]
  - Pyrexia [Unknown]
  - Skin exfoliation [Unknown]
  - Hyperaesthesia [Recovered/Resolved with Sequelae]
  - Feeling hot [Recovering/Resolving]
  - Neck pain [Not Recovered/Not Resolved]
  - Pain [Recovering/Resolving]
  - Weight decreased [Not Recovered/Not Resolved]

NARRATIVE: CASE EVENT DATE: 201512
